FAERS Safety Report 8334687-8 (Version None)
Quarter: 2012Q2

REPORT INFORMATION
  Report Type: 
  Country: None (occurrence: None)
  Receive Date: 20120503
  Receipt Date: 20120427
  Transmission Date: 20120825
  Serious: Yes (Hospitalization)
  Sender: FDA-Public Use
  Company Number: US-ROCHE-1064614

PATIENT
  Sex: Male
  Weight: 154.36 kg

DRUGS (5)
  1. ADVAIR DISKUS 100/50 [Concomitant]
  2. OMALIZUMAB [Suspect]
     Indication: ASTHMA
     Dosage: TWO INJECTIONS EVERY MONTH
     Route: 058
     Dates: start: 20110331, end: 20120201
  3. SINGULAIR [Concomitant]
  4. PREDNISONE TAB [Concomitant]
  5. ALBUTEROL [Concomitant]

REACTIONS (2)
  - ASTHMA [None]
  - INFLUENZA [None]
